FAERS Safety Report 5920810-9 (Version None)
Quarter: 2008Q4

REPORT INFORMATION
  Report Type: 
  Country: None (occurrence: None)
  Receive Date: 20081016
  Receipt Date: 20081001
  Transmission Date: 20090506
  Serious: Yes (Hospitalization)
  Sender: FDA-Public Use
  Company Number: JP-EISAI MEDICAL RESEARCH-E2020-02998-SPO-JP

PATIENT
  Sex: Female

DRUGS (9)
  1. ARICEPT [Suspect]
     Indication: DEMENTIA ALZHEIMER'S TYPE
     Route: 048
     Dates: start: 20030101, end: 20050904
  2. ARICEPT [Suspect]
     Route: 048
     Dates: start: 20050905, end: 20080101
  3. ARICEPT [Suspect]
     Dosage: UNKNOWN
     Route: 048
     Dates: start: 20080101, end: 20080701
  4. BLOPRESS [Concomitant]
     Indication: HYPERTENSION
     Route: 048
  5. FLUITRAN [Concomitant]
     Indication: HYPERTENSION
     Route: 048
     Dates: start: 20050905, end: 20080701
  6. CARBADOGEN [Concomitant]
     Route: 048
     Dates: start: 20060905, end: 20080701
  7. GASPORT [Concomitant]
     Route: 048
  8. NORVASC [Concomitant]
     Indication: HYPERTENSION
     Route: 048
     Dates: start: 20050905, end: 20080701
  9. LAC B [Concomitant]
     Route: 048

REACTIONS (3)
  - ALTERED STATE OF CONSCIOUSNESS [None]
  - BRADYCARDIA [None]
  - OVERDOSE [None]
